FAERS Safety Report 15627678 (Version 8)
Quarter: 2019Q1

REPORT INFORMATION
  Report Type: Report from Study
  Country: NL (occurrence: NL)
  Receive Date: 20181116
  Receipt Date: 20190220
  Transmission Date: 20190417
  Serious: Yes (Death, Life-Threatening, Hospitalization)
  Sender: FDA-Public Use
  Company Number: NL-PFIZER INC-2018471008

PATIENT
  Age: 14 Year
  Sex: Female
  Weight: 47 kg

DRUGS (3)
  1. XALKORI [Suspect]
     Active Substance: CRIZOTINIB
     Dosage: 450 MG, 1X/DAY
     Route: 048
     Dates: start: 20180522, end: 20180529
  2. VINBLASTINE [Suspect]
     Active Substance: VINBLASTINE
     Dosage: 6.8 MG, WEEKLY
     Route: 042
     Dates: start: 20180522, end: 20180529
  3. GRANISETRON [Concomitant]
     Active Substance: GRANISETRON
     Indication: NAUSEA
     Dosage: 2 MG, UNK
     Route: 048
     Dates: start: 20180522, end: 20180529

REACTIONS (5)
  - Hepatic failure [Fatal]
  - Decreased appetite [Fatal]
  - Shock [Fatal]
  - Febrile neutropenia [Not Recovered/Not Resolved]
  - Condition aggravated [Fatal]

NARRATIVE: CASE EVENT DATE: 20180529
